FAERS Safety Report 23718630 (Version 1)
Quarter: 2024Q2

REPORT INFORMATION
  Report Type: Spontaneous
  Country: US (occurrence: US)
  Receive Date: 20240408
  Receipt Date: 20240408
  Transmission Date: 20240716
  Serious: Yes (Other)
  Sender: FDA-Public Use
  Company Number: US-HIKMA PHARMACEUTICALS USA INC.-US-H14001-23-67540

PATIENT
  Sex: Female

DRUGS (1)
  1. BUTORPHANOL TARTRATE [Suspect]
     Active Substance: BUTORPHANOL TARTRATE
     Indication: Migraine
     Dosage: ONE SPRAY IN ONE NOSTRIL, IN ONSET OF HEADACHE EVERY TWELVE HOURS AS NEEDED
     Route: 045
     Dates: start: 201403

REACTIONS (2)
  - Product tampering [Unknown]
  - Product dose omission issue [Unknown]
